FAERS Safety Report 6665540-3 (Version None)
Quarter: 2010Q2

REPORT INFORMATION
  Report Type: 
  Country: None (occurrence: None)
  Receive Date: 20100402
  Receipt Date: 20100401
  Transmission Date: 20101027
  Serious: Yes (Life-Threatening, Hospitalization, Disabling)
  Sender: FDA-Public Use
  Company Number: AU-CELGENEUS-008-20785-10011355

PATIENT
  Sex: Male

DRUGS (6)
  1. VIDAZA [Suspect]
     Route: 050
     Dates: start: 20100105, end: 20100111
  2. VIDAZA [Suspect]
     Route: 050
     Dates: start: 20100202, end: 20100208
  3. THALIDOMIDE [Suspect]
     Route: 048
     Dates: start: 20080903, end: 20090805
  4. MINOCYCLINE HCL [Suspect]
     Route: 048
     Dates: start: 20091012, end: 20100107
  5. BACTRIM [Suspect]
     Indication: PNEUMONIA
     Route: 065
  6. AUGMENTIN [Concomitant]
     Route: 048
     Dates: start: 20091012, end: 20100107

REACTIONS (4)
  - NOCARDIOSIS [None]
  - PLATELET COUNT INCREASED [None]
  - PNEUMONITIS [None]
  - STEVENS-JOHNSON SYNDROME [None]
